FAERS Safety Report 10172876 (Version 1)
Quarter: 2014Q2

REPORT INFORMATION
  Report Type: Spontaneous
  Country: US (occurrence: None)
  Receive Date: 20140425
  Receipt Date: 20140425
  Transmission Date: 20141212
  Serious: Yes (Other)
  Sender: FDA-Public Use
  Company Number: VAL_02780_2013

PATIENT
  Sex: 0

DRUGS (8)
  1. LOPRESSOR (NOT SPECIFIED) [Suspect]
     Indication: PRODUCT USED FOR UNKNOWN INDICATION
     Dosage: DF
  2. ACETYLSALICYLIC ACID [Concomitant]
  3. TICAGRELOR [Concomitant]
  4. ATORVASTATIN CALCIUM [Concomitant]
  5. OMEPRAZOLE [Concomitant]
  6. RAMIPRIL [Concomitant]
  7. VENLAFAXINE [Concomitant]
  8. LEVOTHYROXINE SODIUM [Concomitant]

REACTIONS (1)
  - Bradycardia [None]
